FAERS Safety Report 6440203-8 (Version None)
Quarter: 2009Q4

REPORT INFORMATION
  Report Type: 
  Country: None (occurrence: None)
  Receive Date: 20091113
  Receipt Date: 20090904
  Transmission Date: 20100525
  Serious: No
  Sender: FDA-Public Use
  Company Number: A0806001A

PATIENT
  Age: 44 Year
  Sex: Male

DRUGS (6)
  1. CARVEDILOL [Suspect]
     Indication: MYOCARDIAL INFARCTION
     Dosage: 6.25MG TWICE PER DAY
     Route: 048
     Dates: start: 20070101, end: 20070101
  2. COREG [Suspect]
     Indication: MYOCARDIAL INFARCTION
     Dosage: 6.25MG TWICE PER DAY
     Route: 048
     Dates: start: 20051201, end: 20060301
  3. LISINOPRIL [Concomitant]
  4. BABY ASPIRIN [Concomitant]
  5. FISH OIL [Concomitant]
  6. PLAVIX [Concomitant]

REACTIONS (7)
  - DRUG INEFFECTIVE [None]
  - FEELING ABNORMAL [None]
  - FEELING JITTERY [None]
  - HEART RATE IRREGULAR [None]
  - HYPERTENSION [None]
  - PALPITATIONS [None]
  - SENSORY DISTURBANCE [None]
